FAERS Safety Report 4818138-3 (Version None)
Quarter: 2005Q3

REPORT INFORMATION
  Report Type: 
  Country: None (occurrence: None)
  Receive Date: 20050929
  Receipt Date: 20050829
  Transmission Date: 20060218
  Serious: No
  Sender: FDA-Public Use
  Company Number: 05P-163-0309612-00

PATIENT
  Age: 79 Year
  Sex: Male
  Weight: 68.0396 kg

DRUGS (4)
  1. HUMIRA [Suspect]
     Indication: RHEUMATOID ARTHRITIS
     Dosage: 40MG, 1 IN 2 WK, SUBCUTANEOUS
     Route: 058
     Dates: start: 20050817
  2. ENALAPRIL MALEATE [Concomitant]
  3. TOPOROL [Concomitant]
  4. TERAZOSIN [Concomitant]

REACTIONS (1)
  - PYREXIA [None]
